FAERS Safety Report 26048657 (Version 2)
Quarter: 2025Q4

REPORT INFORMATION
  Report Type: Spontaneous
  Country: EU (occurrence: EU)
  Receive Date: 20251114
  Receipt Date: 20251201
  Transmission Date: 20260117
  Serious: Yes (Death, Other)
  Sender: Atnahs Healthcare
  Company Number: EU-ATNAHS-2025-PMNV-IT001698

PATIENT

DRUGS (46)
  1. DIAZEPAM [Suspect]
     Active Substance: DIAZEPAM
     Indication: Hallucination
     Dosage: 1200 MG, TID
     Route: 065
     Dates: start: 20021009, end: 20021106
  2. DIAZEPAM [Suspect]
     Active Substance: DIAZEPAM
     Indication: Agitation
  3. CALCITRIOL [Suspect]
     Active Substance: CALCITRIOL
     Indication: Product used for unknown indication
     Dosage: 0.5 MCG AT 08.00 HOURS
     Route: 065
     Dates: start: 20020927, end: 20021106
  4. CANRENOATE POTASSIUM [Suspect]
     Active Substance: CANRENOATE POTASSIUM
     Indication: Renal failure
     Dosage: UNK
     Route: 048
     Dates: start: 20021004, end: 20021015
  5. CANRENOATE POTASSIUM [Suspect]
     Active Substance: CANRENOATE POTASSIUM
     Indication: Agitation
     Dosage: UNK
     Route: 042
     Dates: start: 20021027
  6. BETAMETHASONE [Suspect]
     Active Substance: BETAMETHASONE
     Indication: Polyglandular autoimmune syndrome type I
     Dosage: 8 MILLIGRAM
     Route: 042
     Dates: start: 20021106, end: 20021110
  7. BETAMETHASONE [Suspect]
     Active Substance: BETAMETHASONE
     Dosage: UNK
     Route: 065
     Dates: start: 20020927
  8. CALCIUM CARBONATE [Suspect]
     Active Substance: CALCIUM CARBONATE
     Indication: Agitation
     Dosage: 1 G, DAILY
     Route: 048
     Dates: start: 20020927, end: 20020927
  9. CALCIUM CARBONATE [Suspect]
     Active Substance: CALCIUM CARBONATE
     Dosage: 0.5 MCG AT 08.00 HOURS
     Route: 048
     Dates: start: 20020927, end: 20020927
  10. CALCIUM CARBONATE [Suspect]
     Active Substance: CALCIUM CARBONATE
     Dosage: 0.5 MCG AT 08.00 HOURS
     Route: 048
     Dates: start: 20021004
  11. CALCIUM CARBONATE [Suspect]
     Active Substance: CALCIUM CARBONATE
     Dosage: UNK
     Route: 065
     Dates: start: 20021009, end: 20021110
  12. CALCIUM GLUCONATE [Suspect]
     Active Substance: CALCIUM GLUCONATE
     Indication: Product used for unknown indication
     Dosage: 1 GRAM
     Route: 065
     Dates: start: 20021009, end: 20021110
  13. CEFACLOR [Suspect]
     Active Substance: CEFACLOR
     Indication: Oral candidiasis
     Dosage: UNK
     Route: 065
     Dates: start: 20020927, end: 20020927
  14. CEFACLOR [Suspect]
     Active Substance: CEFACLOR
     Indication: Cystitis
  15. CEFACLOR [Suspect]
     Active Substance: CEFACLOR
     Indication: Cystitis
  16. AMOXICILLIN\CLAVULANATE POTASSIUM [Suspect]
     Active Substance: AMOXICILLIN\CLAVULANATE POTASSIUM
     Indication: Pneumonia
     Dosage: 1200 MG, TID
     Route: 042
     Dates: start: 20021004, end: 20021019
  17. CORTISONE ACETATE [Suspect]
     Active Substance: CORTISONE ACETATE
     Indication: Product used for unknown indication
     Dosage: 1200 MG, TID, CUMULATIVE DOSE 3505.263 MG
     Route: 065
     Dates: start: 20020927, end: 20021103
  18. FLUDROCORTISONE [Suspect]
     Active Substance: FLUDROCORTISONE
     Indication: Product used for unknown indication
     Dosage: 1200 MG, TID
     Route: 065
     Dates: start: 20020927, end: 20021024
  19. FUROSEMIDE [Suspect]
     Active Substance: FUROSEMIDE
     Indication: Oliguria
     Dosage: 1200 MG, TID
     Route: 042
     Dates: start: 20021027, end: 20021106
  20. FUROSEMIDE [Suspect]
     Active Substance: FUROSEMIDE
     Indication: Renal impairment
     Dosage: 1200 MG, TID
     Route: 048
     Dates: start: 20021004, end: 20021015
  21. HALOPERIDOL [Suspect]
     Active Substance: HALOPERIDOL
     Indication: Agitation
     Dosage: UNK
     Route: 065
     Dates: start: 20021009, end: 20021104
  22. HALOPERIDOL [Suspect]
     Active Substance: HALOPERIDOL
     Indication: Hallucination
     Dosage: UNK
     Route: 065
     Dates: start: 20021009, end: 20021104
  23. ITRACONAZOLE [Suspect]
     Active Substance: ITRACONAZOLE
     Indication: Oral candidiasis
     Dosage: 100 MG
     Route: 065
     Dates: start: 20021009, end: 20021106
  24. METOCLOPRAMIDE [Suspect]
     Active Substance: METOCLOPRAMIDE
     Indication: Product used for unknown indication
     Dosage: UNK
     Route: 065
     Dates: start: 20020927, end: 20020927
  25. LEVOFLOXACIN [Suspect]
     Active Substance: LEVOFLOXACIN
     Indication: Pneumonia
     Dosage: 500 MG (DAILY DOSE)
     Route: 048
     Dates: start: 20021004, end: 20021019
  26. NYSTATIN [Suspect]
     Active Substance: NYSTATIN
     Indication: Oral candidiasis
     Dosage: 12 ML (DAILY DOSE)
     Route: 065
     Dates: start: 20020927, end: 20021009
  27. NYSTATIN [Suspect]
     Active Substance: NYSTATIN
     Indication: Cystitis
     Dosage: 12 ML
     Route: 065
     Dates: start: 20020927, end: 20020927
  28. NYSTATIN [Suspect]
     Active Substance: NYSTATIN
     Indication: Cystitis
  29. OMEPRAZOLE [Suspect]
     Active Substance: OMEPRAZOLE
     Indication: Product used for unknown indication
     Dosage: 20 MG, DAILY
     Route: 048
     Dates: start: 20020927, end: 20021103
  30. PANTOPRAZOLE [Suspect]
     Active Substance: PANTOPRAZOLE
     Indication: Prophylaxis
     Dosage: UNK
     Route: 048
     Dates: start: 20021009, end: 20021106
  31. RABEPRAZOLE [Suspect]
     Active Substance: RABEPRAZOLE
     Indication: Product used for unknown indication
     Dosage: UNK
     Route: 065
     Dates: start: 20020927, end: 20020927
  32. RABEPRAZOLE [Suspect]
     Active Substance: RABEPRAZOLE
     Indication: Prophylaxis
  33. PIPERACILLIN [Concomitant]
     Active Substance: PIPERACILLIN
     Indication: Product used for unknown indication
     Dosage: UNK
     Route: 065
     Dates: start: 20021102, end: 20021104
  34. POVIDONE-IODINE [Concomitant]
     Active Substance: POVIDONE-IODINE
     Indication: Product used for unknown indication
     Dosage: UNK
     Route: 065
     Dates: start: 20021106, end: 20021110
  35. RANITIDINE [Concomitant]
     Active Substance: RANITIDINE
     Indication: Product used for unknown indication
     Dosage: UNK
     Route: 042
     Dates: start: 20021103, end: 20021110
  36. RIFAMYCIN [Concomitant]
     Active Substance: RIFAMYCIN
     Indication: Product used for unknown indication
     Dosage: UNK
     Route: 065
     Dates: start: 20021104, end: 20021106
  37. RIFAMYCIN [Concomitant]
     Active Substance: RIFAMYCIN
     Dosage: UNK
     Route: 065
     Dates: start: 20021103, end: 20021110
  38. MAGNESIUM HYDROXIDE [Concomitant]
     Active Substance: MAGNESIUM HYDROXIDE
     Indication: Product used for unknown indication
     Dosage: UNK
     Route: 065
     Dates: start: 20020927
  39. GENTAMICIN [Concomitant]
     Active Substance: GENTAMICIN
     Indication: Product used for unknown indication
     Dosage: UNK
     Route: 061
     Dates: start: 20021106, end: 20021110
  40. ALUMINUM HYDROXIDE [Concomitant]
     Active Substance: ALUMINUM HYDROXIDE
     Indication: Product used for unknown indication
     Dosage: UNK
     Route: 048
     Dates: start: 20020927, end: 20021106
  41. CHLORPHENIRAMINE MALEATE [Concomitant]
     Active Substance: CHLORPHENIRAMINE MALEATE
     Indication: Product used for unknown indication
     Dosage: UNK
     Route: 042
     Dates: start: 20021106, end: 20021110
  42. CALCIUM LACTATE GLUCONATE ANHYDROUS [Concomitant]
     Active Substance: CALCIUM LACTATE GLUCONATE ANHYDROUS
     Indication: Product used for unknown indication
     Dosage: UNK
     Route: 048
     Dates: start: 20020927
  43. DEXTROSE [Concomitant]
     Active Substance: DEXTROSE MONOHYDRATE
     Indication: Product used for unknown indication
     Dosage: UNK
     Route: 042
     Dates: start: 20021106, end: 20021110
  44. HYDROCORTISONE HEMISUCCINATE [Concomitant]
     Active Substance: HYDROCORTISONE HEMISUCCINATE
     Indication: Product used for unknown indication
     Dosage: 200 MG
     Route: 042
     Dates: start: 20021103, end: 20021106
  45. INSULIN NOS [Concomitant]
     Active Substance: INSULIN NOS
     Indication: Product used for unknown indication
     Dosage: UNK
     Route: 065
     Dates: start: 20021106, end: 20021110
  46. SODIUM CHLORIDE [Concomitant]
     Active Substance: SODIUM CHLORIDE
     Indication: Product used for unknown indication
     Dosage: UNK
     Route: 065

REACTIONS (20)
  - Skin lesion [Fatal]
  - Toxic epidermal necrolysis [Fatal]
  - Rash [Fatal]
  - Blister [Fatal]
  - Skin exfoliation [Fatal]
  - Septic shock [Fatal]
  - Staphylococcal sepsis [Fatal]
  - Skin infection [Fatal]
  - Rash macular [Fatal]
  - Rash erythematous [Fatal]
  - Mouth ulceration [Fatal]
  - Pyrexia [Fatal]
  - Polyglandular disorder [Unknown]
  - Chronic hepatitis [Unknown]
  - Cystitis [Unknown]
  - Candida infection [Unknown]
  - Hypoparathyroidism [Unknown]
  - Anaemia folate deficiency [Unknown]
  - Vitiligo [Unknown]
  - Endocrine disorder [Unknown]

NARRATIVE: CASE EVENT DATE: 20021001
